FAERS Safety Report 22935978 (Version 4)
Quarter: 2023Q4

REPORT INFORMATION
  Report Type: Spontaneous
  Country: FR (occurrence: FR)
  Receive Date: 20230912
  Receipt Date: 20231007
  Transmission Date: 20240110
  Serious: Yes (Other)
  Sender: FDA-Public Use
  Company Number: FR-AMGEN-FRASP2023147780

PATIENT
  Age: 56 Year
  Sex: Male
  Weight: 78 kg

DRUGS (13)
  1. LUMAKRAS [Suspect]
     Active Substance: SOTORASIB
     Indication: Neoplasm malignant
     Dosage: 960 MILLIGRAM, QD (8 TABLETS PER DAY)
     Route: 048
     Dates: start: 20220905, end: 20221128
  2. LUMAKRAS [Suspect]
     Active Substance: SOTORASIB
     Dosage: 480 MILLIGRAM, QD (4 TABLET PER DAY)
     Route: 048
     Dates: start: 20221128, end: 20230131
  3. LUMAKRAS [Suspect]
     Active Substance: SOTORASIB
     Dosage: 240 MILLIGRAM, QD
     Route: 048
     Dates: start: 20230131, end: 20230208
  4. PREDNISONE [Concomitant]
     Active Substance: PREDNISONE
     Dosage: 60 MILLIGRAM (FOR 5 DAYS)
     Dates: start: 20230110
  5. PREDNISONE [Concomitant]
     Active Substance: PREDNISONE
     Dosage: 50 MILLIGRAM (FOR 5 DAYS)
     Dates: start: 2023
  6. PREDNISONE [Concomitant]
     Active Substance: PREDNISONE
     Dosage: 40 MILLIGRAM (FOR 5 DAYS)
     Dates: start: 2023
  7. PREDNISONE [Concomitant]
     Active Substance: PREDNISONE
     Dosage: 30 MILLIGRAM (FOR 5 DAYS)
     Dates: start: 2023
  8. PREDNISONE [Concomitant]
     Active Substance: PREDNISONE
     Dosage: 20 MILLIGRAM (FOR 5 DAYS)
     Dates: start: 2023
  9. KEPPRA [Concomitant]
     Active Substance: LEVETIRACETAM
     Dosage: 250 MILLIGRAM, BID (IN MORNING AND EVENING FOR ONE MONTH)
     Dates: start: 20230110
  10. FRESUBIN [Concomitant]
     Active Substance: AMINO ACIDS\DEXTROSE\ELECTROLYTES NOS\SOYBEAN OIL\VITAMINS
     Dosage: MILK SUPPLEMENTS, 2 PER DAY FOR 1 MONTH
     Dates: start: 20230110
  11. MORPHINE SULFATE [Concomitant]
     Active Substance: MORPHINE SULFATE
     Dosage: 3-4/D
  12. SKENAN [Concomitant]
     Active Substance: MORPHINE SULFATE
     Dosage: 10 MILLIGRAM,BID, MORNING AND EVENING, INTER-DOSE 5 MG
  13. Solupred [Concomitant]
     Dosage: 60 MILLIGRAM

REACTIONS (3)
  - Cholestasis [Unknown]
  - Hepatic cytolysis [Recovered/Resolved]
  - Drug intolerance [Unknown]

NARRATIVE: CASE EVENT DATE: 20220101
